FAERS Safety Report 6265035-5 (Version None)
Quarter: 2009Q3

REPORT INFORMATION
  Report Type: 
  Country: None (occurrence: None)
  Receive Date: 20090709
  Receipt Date: 20090709
  Transmission Date: 20100115
  Serious: No
  Sender: FDA-Public Use
  Company Number: None

PATIENT

DRUGS (1)
  1. BORTEZOMIB 2.5 MG [Suspect]
     Indication: NEOPLASM MALIGNANT
     Dates: start: 20090407, end: 20090602

REACTIONS (1)
  - NEUROPATHY PERIPHERAL [None]
